FAERS Safety Report 19309065 (Version 1)
Quarter: 2021Q2

REPORT INFORMATION
  Report Type: Spontaneous
  Country: US (occurrence: US)
  Receive Date: 20210526
  Receipt Date: 20210526
  Transmission Date: 20210717
  Serious: Yes (Other)
  Sender: FDA-Public Use
  Company Number: US-PFIZER INC-2021547896

PATIENT
  Age: 19 Year
  Sex: Female

DRUGS (1)
  1. DEPO?PROVERA [Suspect]
     Active Substance: MEDROXYPROGESTERONE ACETATE
     Indication: CONTRACEPTION
     Dosage: INJECTION EVERY 3 MONTHS
     Dates: start: 20170819, end: 20191121

REACTIONS (15)
  - Premature menopause [Recovered/Resolved]
  - Menstruation irregular [Recovered/Resolved]
  - Night sweats [Recovering/Resolving]
  - Inadequate lubrication [Recovered/Resolved]
  - Hot flush [Recovering/Resolving]
  - Insomnia [Recovering/Resolving]
  - Vulvovaginal injury [Unknown]
  - Arthropathy [Unknown]
  - Visual impairment [Unknown]
  - Mood swings [Unknown]
  - Feeling abnormal [Unknown]
  - Hormone level abnormal [Unknown]
  - Suicide attempt [Unknown]
  - Oestrogen deficiency [Recovered/Resolved]
  - Uterine disorder [Unknown]
